FAERS Safety Report 6385482-0 (Version None)
Quarter: 2009Q4

REPORT INFORMATION
  Report Type: 
  Country: None (occurrence: None)
  Receive Date: 20091002
  Receipt Date: 20080916
  Transmission Date: 20100525
  Serious: No
  Sender: FDA-Public Use
  Company Number: US-ASTRAZENECA-2008UW19168

PATIENT
  Age: 79 Year
  Sex: Female

DRUGS (4)
  1. ARIMIDEX [Suspect]
     Indication: BREAST CANCER RECURRENT
     Route: 048
     Dates: start: 20070101
  2. NORVASC [Concomitant]
  3. TOPROL-XL [Concomitant]
  4. LINIPRIL [Concomitant]

REACTIONS (1)
  - LIMB INJURY [None]
